FAERS Safety Report 7126966-7 (Version None)
Quarter: 2010Q4

REPORT INFORMATION
  Report Type: 
  Country: None (occurrence: None)
  Receive Date: 20101129
  Receipt Date: 20091215
  Transmission Date: 20110411
  Serious: No
  Sender: FDA-Public Use
  Company Number: US-PFIZER INC-2009311208

PATIENT
  Sex: Male
  Weight: 86.2 kg

DRUGS (4)
  1. VIAGRA [Suspect]
     Indication: ERECTILE DYSFUNCTION
     Dosage: 100 MG, AS NEEDED
     Route: 048
     Dates: start: 20070101
  2. LIPITOR [Concomitant]
     Dosage: 10 MG, 1X/DAY DAILY DOSE: 10 MG
     Route: 048
  3. HYDROCHLOROTHIAZIDE [Concomitant]
     Dosage: 25 MG, 1X/DAY DAILY DOSE: 25 MG
  4. PROTONIX [Concomitant]
     Dosage: 40 MG, 1X/DAY DAILY DOSE: 40 MG

REACTIONS (1)
  - DRUG INEFFECTIVE [None]
